APPROVED DRUG PRODUCT: SESQUIENT
Active Ingredient: FOSPHENYTOIN SODIUM
Strength: EQ 100MG PHENYTOIN NA/2ML (EQ 50MG PHENYTOIN NA/ML)
Dosage Form/Route: SOLUTION;INTRAVENOUS
Application: N210864 | Product #001
Applicant: LUPIN INC
Approved: Nov 5, 2020 | RLD: Yes | RS: No | Type: DISCN

PATENTS:
Patent 8410077 | Expires: Mar 13, 2029
Patent 9200088 | Expires: Mar 13, 2029
Patent 9750822 | Expires: Mar 13, 2029
Patent 7635773 | Expires: Mar 13, 2029
Patent 9493582 | Expires: Feb 27, 2033